FAERS Safety Report 9166286 (Version 2)
Quarter: 2013Q2

REPORT INFORMATION
  Report Type: Spontaneous
  Country: CA (occurrence: CA)
  Receive Date: 20130315
  Receipt Date: 20130412
  Transmission Date: 20140414
  Serious: Yes (Disabling)
  Sender: FDA-Public Use
  Company Number: CA-ASTRAZENECA-2013SE14529

PATIENT
  Age: 55 Year
  Sex: Male

DRUGS (3)
  1. SYMBICORT TURBUHALER [Suspect]
     Indication: ASTHMA
     Dosage: DAILY DOSAGE:400 MCG, DOSE FREQUENCY: BID
     Route: 055
     Dates: start: 2010
  2. SYMBICORT TURBUHALER [Suspect]
     Indication: ASTHMA
     Dosage: 200/6 MCG, UNKNOWN
     Route: 055
  3. SYMBICORT TURBUHALER [Suspect]
     Indication: ASTHMA
     Route: 055

REACTIONS (6)
  - Pulmonary congestion [Recovered/Resolved]
  - Dysgeusia [Recovered/Resolved]
  - Cough [Recovered/Resolved]
  - Pain in jaw [Recovered/Resolved]
  - Dyspnoea [Recovered/Resolved]
  - Drug ineffective [Recovered/Resolved]
